FAERS Safety Report 4281312-1 (Version None)
Quarter: 2004Q1

REPORT INFORMATION
  Report Type: 
  Country: None (occurrence: None)
  Receive Date: 20040129
  Receipt Date: 20030214
  Transmission Date: 20041129
  Serious: Yes (Hospitalization)
  Sender: FDA-Public Use
  Company Number: FR-ROCHE-331766

PATIENT
  Age: 24 Year
  Sex: Male

DRUGS (7)
  1. DACLIZUMAB [Suspect]
     Route: 065
     Dates: start: 20020620, end: 20020620
  2. DACLIZUMAB [Suspect]
     Route: 065
     Dates: start: 20020704
  3. MYCOPHENOLATE MOFETIL [Suspect]
     Route: 048
  4. MYCOPHENOLATE MOFETIL [Suspect]
     Route: 048
     Dates: start: 20021014, end: 20021022
  5. MYCOPHENOLATE MOFETIL [Suspect]
     Route: 048
     Dates: start: 20021031
  6. NEORAL [Suspect]
     Route: 048
     Dates: end: 20021014
  7. STEROIDS [Suspect]
     Route: 065

REACTIONS (7)
  - CONDITION AGGRAVATED [None]
  - CYTOMEGALOVIRUS INFECTION [None]
  - HYPERTHERMIA [None]
  - LEUKOPENIA [None]
  - NEUTROPENIA [None]
  - RENAL IMPAIRMENT [None]
  - THERAPEUTIC AGENT TOXICITY [None]
